FAERS Safety Report 5245962-8 (Version None)
Quarter: 2007Q1

REPORT INFORMATION
  Report Type: 
  Country: None (occurrence: None)
  Receive Date: 20070221
  Receipt Date: 20070207
  Transmission Date: 20070707
  Serious: Yes (Hospitalization)
  Sender: FDA-Public Use
  Company Number: 152651ISR

PATIENT
  Age: 46 Year
  Sex: Male

DRUGS (2)
  1. METFORMIN HCL [Suspect]
     Indication: DIABETES MELLITUS
     Dosage: 56G OVER A DURATION OF 4 HOURS
  2. RAMIPRIL [Suspect]
     Indication: HYPERTENSION
     Dosage: 35G OVER A DURATION OF 4 HOURS

REACTIONS (23)
  - ABDOMINAL PAIN LOWER [None]
  - APNOEA [None]
  - BLOOD GLUCOSE INCREASED [None]
  - BODY TEMPERATURE DECREASED [None]
  - CARDIAC ARREST [None]
  - COMPARTMENT SYNDROME [None]
  - DEHYDRATION [None]
  - DIARRHOEA [None]
  - HAEMODIALYSIS [None]
  - HAEMODYNAMIC INSTABILITY [None]
  - HYPOTENSION [None]
  - LACTIC ACIDOSIS [None]
  - LEG AMPUTATION [None]
  - METABOLIC ACIDOSIS [None]
  - MULTIPLE DRUG OVERDOSE [None]
  - PALLOR [None]
  - PARTIAL SEIZURES [None]
  - RENAL IMPAIRMENT [None]
  - RESPIRATORY RATE INCREASED [None]
  - RHABDOMYOLYSIS [None]
  - SOFT TISSUE NECROSIS [None]
  - TACHYPNOEA [None]
  - VOMITING [None]
